FAERS Safety Report 7672084-9 (Version None)
Quarter: 2011Q3

REPORT INFORMATION
  Report Type: 
  Country: None (occurrence: None)
  Receive Date: 20110809
  Receipt Date: 20110801
  Transmission Date: 20111222
  Serious: Yes (Disabling)
  Sender: FDA-Public Use
  Company Number: PHHY2011US59900

PATIENT
  Sex: Female
  Weight: 132 kg

DRUGS (1)
  1. RECLAST [Suspect]
     Indication: OSTEOPOROSIS
     Dosage: 5 MG, ONCE PER YEAR
     Route: 042
     Dates: start: 20110630

REACTIONS (13)
  - PARAESTHESIA [None]
  - PAIN [None]
  - MYALGIA [None]
  - PYREXIA [None]
  - MALAISE [None]
  - VISION BLURRED [None]
  - INFLUENZA LIKE ILLNESS [None]
  - PAIN IN JAW [None]
  - ARTHRALGIA [None]
  - HEADACHE [None]
  - MEMORY IMPAIRMENT [None]
  - APATHY [None]
  - SYNCOPE [None]
